FAERS Safety Report 19821152 (Version 2)
Quarter: 2021Q3

REPORT INFORMATION
  Report Type: Spontaneous
  Country: JO (occurrence: JO)
  Receive Date: 20210913
  Receipt Date: 20210915
  Transmission Date: 20211014
  Serious: Yes (Death, Life-Threatening, Hospitalization, Other)
  Sender: FDA-Public Use
  Company Number: AE-STRIDES ARCOLAB LIMITED-2021SP027406

PATIENT
  Age: 62 Year
  Sex: Male

DRUGS (1)
  1. PREDNISOLONE. [Suspect]
     Active Substance: PREDNISOLONE
     Indication: AORTITIS
     Dosage: 35 MILLIGRAM PER DAY HIGH?DOSE
     Route: 065

REACTIONS (6)
  - Weight increased [Unknown]
  - COVID-19 [Fatal]
  - Infected cyst [Unknown]
  - Acute respiratory failure [Fatal]
  - Blood glucose abnormal [Unknown]
  - SARS-CoV-2 sepsis [Fatal]
